FAERS Safety Report 12256559 (Version 1)
Quarter: 2016Q2

REPORT INFORMATION
  Report Type: Spontaneous
  Country: US (occurrence: None)
  Receive Date: 20160411
  Receipt Date: 20160411
  Transmission Date: 20160815
  Serious: Yes (Hospitalization)
  Sender: FDA-Public Use
  Company Number: None

PATIENT
  Age: 69 Year
  Sex: Male
  Weight: 68.94 kg

DRUGS (25)
  1. OXYCODONE [Concomitant]
     Active Substance: OXYCODONE
  2. ALLOPURINOL (ZYLOPRIM) [Concomitant]
  3. NORVASC [Concomitant]
     Active Substance: AMLODIPINE BESYLATE
  4. EPOETIN ALFA (EPOGEN INJ) [Concomitant]
  5. MAGNESIUM OXIDE (MAG-OX) [Concomitant]
  6. PARICALCITOL (ZEMPLAR) [Concomitant]
  7. PRAVACHOL [Concomitant]
     Active Substance: PRAVASTATIN SODIUM
  8. VIEKIRA PAK [Suspect]
     Active Substance: DASABUVIR\OMBITASVIR\PARITAPREVIR\RITONAVIR
     Indication: HEPATITIS C
     Dosage: VIEKIRA PAK 3 TABS BD PO
     Route: 048
     Dates: start: 20151010, end: 20160326
  9. LASIX [Concomitant]
     Active Substance: FUROSEMIDE
  10. MIRALAX [Concomitant]
     Active Substance: POLYETHYLENE GLYCOL 3350
  11. MULTIVITAMIN [Concomitant]
     Active Substance: VITAMINS
  12. NADOLOL (CORGARD) [Concomitant]
  13. RALTEGRAVIR (ISENTRESS) [Concomitant]
  14. ZIAGEN [Concomitant]
     Active Substance: ABACAVIR SULFATE
  15. CINACALCET (SENSIPAR) [Concomitant]
  16. ERGOCALCIFEROL, VITAMIN D2 [Concomitant]
  17. SENNA-DOCUSATE (SENNA-PLUS) [Concomitant]
  18. LAMIVUDINE (EPIVIR) [Concomitant]
  19. HYDROCORTISONE (CORTEF) [Concomitant]
  20. TYLENOL [Concomitant]
     Active Substance: ACETAMINOPHEN
  21. AMOXICILLIN (AMOXIL) [Concomitant]
  22. CALCITRIOL (ROCALTROL) [Concomitant]
  23. PANTOPRAZOLE (PROTONIX) [Concomitant]
  24. SEVELAMER (RENVELA) [Concomitant]
  25. NITROGLYCERIN (NITROSTAT) [Concomitant]

REACTIONS (6)
  - Post procedural complication [None]
  - Bacterial test positive [None]
  - Device failure [None]
  - Haemorrhagic anaemia [None]
  - Laboratory test interference [None]
  - Propionibacterium test positive [None]

NARRATIVE: CASE EVENT DATE: 20160126
